FAERS Safety Report 17464036 (Version 2)
Quarter: 2020Q1

REPORT INFORMATION
  Report Type: Report from Study
  Country: CA (occurrence: CA)
  Receive Date: 20200226
  Receipt Date: 20200310
  Transmission Date: 20200409
  Serious: Yes (Hospitalization)
  Sender: FDA-Public Use
  Company Number: CA-TAKEDA-2019TUS025669

PATIENT
  Age: 44 Year
  Sex: Female

DRUGS (4)
  1. VITAMIN D NOS [Concomitant]
     Active Substance: VITAMIN D NOS
     Dosage: UNK
  2. VEDOLIZUMAB [Suspect]
     Active Substance: VEDOLIZUMAB
     Indication: CROHN^S DISEASE
     Dosage: 300 MILLIGRAM
     Route: 042
     Dates: start: 20181022
  3. RITUXAN [Concomitant]
     Active Substance: RITUXIMAB
     Dosage: UNK
  4. BUDESONIDE. [Concomitant]
     Active Substance: BUDESONIDE
     Dosage: UNK

REACTIONS (9)
  - Oropharyngeal pain [Unknown]
  - Swelling face [Unknown]
  - Pyrexia [Unknown]
  - Multiple sclerosis [Unknown]
  - Cough [Unknown]
  - Rash macular [Unknown]
  - Headache [Unknown]
  - Back pain [Unknown]
  - Pneumonia [Recovering/Resolving]
